FAERS Safety Report 9286742 (Version 1)
Quarter: 2013Q2

REPORT INFORMATION
  Report Type: Spontaneous
  Country: ES (occurrence: ES)
  Receive Date: 20130513
  Receipt Date: 20130513
  Transmission Date: 20140414
  Serious: Yes (Other)
  Sender: FDA-Public Use
  Company Number: ES-TEVA-403882ISR

PATIENT
  Age: 62 Year
  Sex: Female

DRUGS (8)
  1. CARBOPLATINO TEVA 10MG/ML CONCENTRADO PARA SOLUCION PARA PERFUSION [Suspect]
     Indication: OVARIAN CANCER
     Dosage: 10 MG/ML
     Route: 042
     Dates: start: 20120628
  2. PACLITAXEL TEVA 6 MG/ML CONCENTRADO PARA SOLUCION PARA PERFUSION EFG [Suspect]
     Indication: OVARIAN CANCER
     Dosage: 6 MG/ML
     Route: 042
     Dates: start: 20120628
  3. IRON [Concomitant]
     Route: 048
     Dates: start: 2012
  4. SIMVASTATIN [Concomitant]
     Route: 048
     Dates: start: 2012
  5. ALPRAZOLAM [Concomitant]
     Route: 048
     Dates: start: 2012
  6. ADIRO 100MG [Concomitant]
     Dosage: 100 MILLIGRAM DAILY;
     Route: 048
     Dates: start: 2012
  7. COAPROVEL 150MG/12.5MG [Concomitant]
     Dosage: IRBESARTAN 150MG/HYDROCHLOROTHIAZIDE 12.5MG
     Route: 048
     Dates: start: 2012
  8. NOCTAMID 1MG [Concomitant]
     Route: 048
     Dates: start: 2012

REACTIONS (7)
  - Memory impairment [Recovered/Resolved]
  - Insomnia [Recovered/Resolved]
  - Nervousness [Recovered/Resolved]
  - Hypoaesthesia [Recovering/Resolving]
  - Asthenia [Not Recovered/Not Resolved]
  - Swelling [Recovered/Resolved]
  - Pain [Recovered/Resolved]
